FAERS Safety Report 6727491-5 (Version None)
Quarter: 2010Q2

REPORT INFORMATION
  Report Type: 
  Country: None (occurrence: None)
  Receive Date: 20100517
  Receipt Date: 20100506
  Transmission Date: 20101027
  Serious: Yes (Other)
  Sender: FDA-Public Use
  Company Number: JP-BRISTOL-MYERS SQUIBB COMPANY-15098007

PATIENT
  Age: 37 Year
  Sex: Male

DRUGS (2)
  1. KENACORT [Suspect]
     Indication: TRIGGER FINGER
     Dosage: ROUTE-INTRA-TENDON SHEATH
     Dates: start: 20071201
  2. KENACORT [Suspect]
     Indication: PAIN
     Dosage: ROUTE-INTRA-TENDON SHEATH
     Dates: start: 20071201

REACTIONS (2)
  - SYNOVITIS [None]
  - TENDON RUPTURE [None]
